FAERS Safety Report 24670036 (Version 1)
Quarter: 2024Q4

REPORT INFORMATION
  Report Type: Spontaneous
  Country: US (occurrence: None)
  Receive Date: 20241126
  Receipt Date: 20241126
  Transmission Date: 20250115
  Serious: Yes (Hospitalization, Disabling, Other)
  Sender: Public
  Company Number: None

PATIENT
  Age: 31 Year
  Sex: Male
  Weight: 78.75 kg

DRUGS (1)
  1. FINASTERIDE [Suspect]
     Active Substance: FINASTERIDE
     Indication: Androgenetic alopecia

REACTIONS (9)
  - Sexual dysfunction [None]
  - Erectile dysfunction [None]
  - Loss of libido [None]
  - Genital hypoaesthesia [None]
  - Depression [None]
  - Cognitive disorder [None]
  - Suicidal ideation [None]
  - Suicide attempt [None]
  - Product complaint [None]

NARRATIVE: CASE EVENT DATE: 20220103
